FAERS Safety Report 8302525-5 (Version None)
Quarter: 2012Q1

REPORT INFORMATION
  Report Type: 
  Country: None (occurrence: None)
  Receive Date: 20120326
  Receipt Date: 20110314
  Transmission Date: 20120608
  Serious: Yes (Other)
  Sender: FDA-Public Use
  Company Number: PHHY2011US19266

PATIENT
  Age: 49 Year
  Sex: Female

DRUGS (13)
  1. CLONAZEPAM [Concomitant]
  2. TASIGNA [Suspect]
     Indication: CHRONIC MYELOID LEUKAEMIA
     Dosage: 200 MG, BID ; 400 MG, BID, ORAL ; 400 MG DAILY, ORAL ; 400 MG  DAILY, ORAL ; 200 MG, BID, ORAL
     Route: 048
     Dates: start: 20100801
  3. TASIGNA [Suspect]
     Indication: CHRONIC MYELOID LEUKAEMIA
     Dosage: 200 MG, BID ; 400 MG, BID, ORAL ; 400 MG DAILY, ORAL ; 400 MG  DAILY, ORAL ; 200 MG, BID, ORAL
     Route: 048
     Dates: start: 20101104
  4. TASIGNA [Suspect]
     Indication: CHRONIC MYELOID LEUKAEMIA
     Dosage: 200 MG, BID ; 400 MG, BID, ORAL ; 400 MG DAILY, ORAL ; 400 MG  DAILY, ORAL ; 200 MG, BID, ORAL
     Route: 048
     Dates: start: 20101123
  5. TASIGNA [Suspect]
     Indication: CHRONIC MYELOID LEUKAEMIA
     Dosage: 200 MG, BID ; 400 MG, BID, ORAL ; 400 MG DAILY, ORAL ; 400 MG  DAILY, ORAL ; 200 MG, BID, ORAL
     Route: 048
     Dates: end: 20101027
  6. ESTRADIOL [Concomitant]
  7. FLUOXETINE [Concomitant]
  8. VITAMIN D [Concomitant]
  9. ADVIL /00044201/ (MEFFENAMIC ACID) [Concomitant]
  10. MAGNESIUM (MAGNESIUM) [Concomitant]
  11. CRANBERRY TABLET [Concomitant]
  12. PROBIOTICS (MICROORGANISMS  W/PROBIOTIC ACTION) (NO INGREDIENTS/SUBSTA [Concomitant]
  13. MULTIVITAMINS (ASCORBIC ACID, ERGOCALCIFEROL, FOLIC ACID, NICOTINAMIDE [Concomitant]

REACTIONS (18)
  - NAUSEA [None]
  - HEADACHE [None]
  - FLUID RETENTION [None]
  - PRURITUS [None]
  - PAIN [None]
  - MOOD SWINGS [None]
  - OEDEMA [None]
  - LOWER RESPIRATORY TRACT INFECTION [None]
  - NASOPHARYNGITIS [None]
  - OROPHARYNGEAL PAIN [None]
  - FLANK PAIN [None]
  - ELECTROCARDIOGRAM QT PROLONGED [None]
  - BLOOD CHOLESTEROL INCREASED [None]
  - HYPERBILIRUBINAEMIA [None]
  - WEIGHT INCREASED [None]
  - DIZZINESS [None]
  - DRY SKIN [None]
  - HERPES VIRUS INFECTION [None]
